FAERS Safety Report 5698103-7 (Version None)
Quarter: 2008Q2

REPORT INFORMATION
  Report Type: 
  Country: None (occurrence: None)
  Receive Date: 20080404
  Receipt Date: 20080404
  Transmission Date: 20081010
  Serious: Yes (Other)
  Sender: FDA-Public Use
  Company Number: None

PATIENT
  Sex: Female
  Weight: 72.5755 kg

DRUGS (1)
  1. SIMVASTATIN [Suspect]
     Indication: BLOOD CHOLESTEROL INCREASED
     Dosage: 80MG.  1 A DAY   PO
     Route: 048
     Dates: start: 20080205, end: 20080326

REACTIONS (3)
  - FALL [None]
  - MUSCULAR WEAKNESS [None]
  - PAIN IN EXTREMITY [None]
